FAERS Safety Report 11574241 (Version 1)
Quarter: 2015Q3

REPORT INFORMATION
  Report Type: Spontaneous
  Country: US (occurrence: None)
  Receive Date: 20150928
  Receipt Date: 20150928
  Transmission Date: 20151125
  Serious: Yes (Disabling)
  Sender: FDA-Public Use
  Company Number: None

PATIENT
  Age: 56 Year
  Sex: Female
  Weight: 97.52 kg

DRUGS (21)
  1. CLOPIDOGREL [Concomitant]
     Active Substance: CLOPIDOGREL BISULFATE
  2. ZOLOFT [Concomitant]
     Active Substance: SERTRALINE HYDROCHLORIDE
  3. LANSOPRAZOLE. [Concomitant]
     Active Substance: LANSOPRAZOLE
  4. CLONAZEPAM. [Concomitant]
     Active Substance: CLONAZEPAM
  5. METHOTREXATE [Concomitant]
     Active Substance: METHOTREXATE
  6. VITAMIN E [Concomitant]
     Active Substance: .ALPHA.-TOCOPHEROL
  7. AMITRIPTYLINE [Concomitant]
     Active Substance: AMITRIPTYLINE
  8. ROPINIROLE. [Concomitant]
     Active Substance: ROPINIROLE
  9. TRAZODONE [Concomitant]
     Active Substance: TRAZODONE HYDROCHLORIDE
  10. NABUMETONE. [Concomitant]
     Active Substance: NABUMETONE
  11. PRAVASTATIN [Concomitant]
     Active Substance: PRAVASTATIN\PRAVASTATIN SODIUM
  12. LEVOXOL [Concomitant]
  13. CALCIUM [Concomitant]
     Active Substance: CALCIUM
  14. LATUDA [Suspect]
     Active Substance: LURASIDONE HYDROCHLORIDE
     Indication: BIPOLAR DISORDER
     Dosage: AT BEDTIME, TAKEN BY MOUTH
     Dates: start: 20140804, end: 20141208
  15. HYDROCHLOROTHIAZIDE. [Concomitant]
     Active Substance: HYDROCHLOROTHIAZIDE
  16. TIZANIDINE. [Concomitant]
     Active Substance: TIZANIDINE
  17. VOLTAREN [Concomitant]
     Active Substance: DICLOFENAC SODIUM
  18. OMEGA TREE FISH OIL [Concomitant]
  19. LISINOPRIL. [Concomitant]
     Active Substance: LISINOPRIL
  20. AMLODIPINE [Concomitant]
     Active Substance: AMLODIPINE BESYLATE
  21. FOLIC ACID. [Concomitant]
     Active Substance: FOLIC ACID

REACTIONS (9)
  - Tremor [None]
  - Muscle spasms [None]
  - Asthenia [None]
  - Chills [None]
  - Endodontic procedure [None]
  - Headache [None]
  - Dystonia [None]
  - Tooth fracture [None]
  - Grimacing [None]

NARRATIVE: CASE EVENT DATE: 20141103
